FAERS Safety Report 4759654-2 (Version None)
Quarter: 2005Q3

REPORT INFORMATION
  Report Type: 
  Country: None (occurrence: None)
  Receive Date: 20050901
  Receipt Date: 20050516
  Transmission Date: 20060218
  Serious: Yes (Hospitalization, Disabling)
  Sender: FDA-Public Use
  Company Number: US-MERCK-0505USA01960

PATIENT
  Age: 46 Year
  Sex: Male
  Weight: 100 kg

DRUGS (8)
  1. VIOXX [Suspect]
     Indication: INFLAMMATION
     Route: 048
     Dates: start: 20030201, end: 20040601
  2. VIOXX [Suspect]
     Route: 048
     Dates: start: 20040419
  3. VIOXX [Suspect]
     Indication: MUSCULOSKELETAL PAIN
     Route: 048
     Dates: start: 20030201, end: 20040601
  4. VIOXX [Suspect]
     Route: 048
     Dates: start: 20040419
  5. MOTRIN [Concomitant]
     Indication: BACK PAIN
     Route: 065
     Dates: start: 19870101
  6. LISINOPRIL [Concomitant]
     Route: 065
  7. PAXIL [Concomitant]
     Indication: DEPRESSION
     Route: 065
  8. RISPERDAL [Concomitant]
     Route: 065

REACTIONS (21)
  - ANGINA UNSTABLE [None]
  - BACK PAIN [None]
  - BLOOD CHOLESTEROL INCREASED [None]
  - CHEST PAIN [None]
  - CHEST WALL PAIN [None]
  - CORONARY ARTERY DISEASE [None]
  - COUGH [None]
  - DEPRESSION [None]
  - DIARRHOEA [None]
  - GASTROOESOPHAGEAL REFLUX DISEASE [None]
  - HYPERLIPIDAEMIA [None]
  - HYPERTENSION [None]
  - LUNG DISORDER [None]
  - LUNG NEOPLASM [None]
  - MUSCULOSKELETAL CHEST PAIN [None]
  - MYOCARDIAL INFARCTION [None]
  - PANCREATITIS [None]
  - PLEURAL EFFUSION [None]
  - PNEUMONIA [None]
  - PULMONARY GRANULOMA [None]
  - VOMITING [None]
